FAERS Safety Report 16426237 (Version 1)
Quarter: 2019Q2

REPORT INFORMATION
  Report Type: Spontaneous
  Country: DE (occurrence: DE)
  Receive Date: 20190613
  Receipt Date: 20190613
  Transmission Date: 20190711
  Serious: Yes (Other)
  Sender: FDA-Public Use
  Company Number: DE-HIKMA PHARMACEUTICALS USA INC.-DE-H14001-19-45680

PATIENT
  Sex: Female

DRUGS (11)
  1. CIPROBAY [Suspect]
     Active Substance: CIPROFLOXACIN
     Dosage: ()
  2. TAVANIC [Suspect]
     Active Substance: LEVOFLOXACIN
     Dosage: ()
  3. CIPROFLOXACIN. [Suspect]
     Active Substance: CIPROFLOXACIN
     Dosage: ()
  4. CIPROBAY [Suspect]
     Active Substance: CIPROFLOXACIN
     Indication: PRODUCT USED FOR UNKNOWN INDICATION
     Dosage: ()
  5. TAVANIC [Suspect]
     Active Substance: LEVOFLOXACIN
     Indication: SINUSITIS
     Dosage: ()
  6. CIPROFLOXACIN. [Suspect]
     Active Substance: CIPROFLOXACIN
     Indication: PRODUCT USED FOR UNKNOWN INDICATION
     Dosage: ()
  7. CIPROFLOXACIN. [Suspect]
     Active Substance: CIPROFLOXACIN
     Dosage: ()
  8. CIPROFLOXACIN. [Suspect]
     Active Substance: CIPROFLOXACIN
     Dosage: ()
  9. FLOXAL AUGENTROPFEN [Suspect]
     Active Substance: OFLOXACIN
     Indication: SINUSITIS
     Dosage: ()
  10. CILOXAN [Suspect]
     Active Substance: CIPROFLOXACIN HYDROCHLORIDE
     Indication: PRODUCT USED FOR UNKNOWN INDICATION
     Dosage: ()
  11. TAVANIC [Suspect]
     Active Substance: LEVOFLOXACIN
     Dosage: ()

REACTIONS (5)
  - Loss of consciousness [Unknown]
  - Neuralgia [Unknown]
  - Hypoglycaemia [Unknown]
  - Asthenia [Unknown]
  - Dizziness [Unknown]

NARRATIVE: CASE EVENT DATE: 201812
